FAERS Safety Report 8021160-X (Version None)
Quarter: 2012Q1

REPORT INFORMATION
  Report Type: 
  Country: None (occurrence: None)
  Receive Date: 20120104
  Receipt Date: 20111230
  Transmission Date: 20120608
  Serious: Yes (Other)
  Sender: FDA-Public Use
  Company Number: US-SANOFI-AVENTIS-2011SA084143

PATIENT
  Age: 67 Year
  Sex: Female

DRUGS (2)
  1. SOLOSTAR [Suspect]
     Dates: start: 20100101
  2. LANTUS [Suspect]
     Dosage: DOSE:14 UNIT(S)
     Route: 051
     Dates: start: 20100101

REACTIONS (5)
  - COGNITIVE DISORDER [None]
  - CENTRAL NERVOUS SYSTEM LESION [None]
  - SKIN CANCER [None]
  - FALL [None]
  - FATIGUE [None]
